FAERS Safety Report 15853595 (Version 1)
Quarter: 2019Q1

REPORT INFORMATION
  Report Type: Spontaneous
  Country: US (occurrence: US)
  Receive Date: 20190121
  Receipt Date: 20190121
  Transmission Date: 20190417
  Serious: No
  Sender: FDA-Public Use
  Company Number: None

PATIENT
  Age: 22 Year
  Sex: Female

DRUGS (1)
  1. MICONAZOLE 1 [Suspect]
     Active Substance: MICONAZOLE NITRATE
     Indication: FUNGAL INFECTION
     Dosage: ?          QUANTITY:1 TABLET(S);?
     Route: 067
     Dates: start: 20190120, end: 20190120

REACTIONS (5)
  - Abdominal pain [None]
  - Swelling of eyelid [None]
  - Hyperhidrosis [None]
  - Swelling face [None]
  - Wrong technique in product usage process [None]

NARRATIVE: CASE EVENT DATE: 20190120
